FAERS Safety Report 8350215-5 (Version None)
Quarter: 2012Q2

REPORT INFORMATION
  Report Type: 
  Country: None (occurrence: None)
  Receive Date: 20120510
  Receipt Date: 20120501
  Transmission Date: 20120825
  Serious: Yes (Hospitalization, Other)
  Sender: FDA-Public Use
  Company Number: US-ROCHE-1057225

PATIENT
  Sex: Male
  Weight: 62.198 kg

DRUGS (8)
  1. MEGACE [Concomitant]
     Indication: DECREASED APPETITE
     Route: 048
     Dates: start: 20120420
  2. OXYCODONE HCL [Concomitant]
     Indication: PAIN
     Route: 048
  3. TEMODAR [Concomitant]
  4. ZELBORAF [Suspect]
     Route: 048
  5. FENTANYL CITRATE [Concomitant]
     Indication: PAIN MANAGEMENT
     Route: 062
     Dates: start: 20120317
  6. ZELBORAF [Suspect]
     Indication: MALIGNANT MELANOMA
     Route: 048
     Dates: start: 20120327
  7. MORPHINE [Concomitant]
     Indication: PAIN
     Route: 048
  8. COMPAZINE [Concomitant]
     Route: 048

REACTIONS (8)
  - RASH [None]
  - DECREASED APPETITE [None]
  - WEIGHT DECREASED [None]
  - FATIGUE [None]
  - NAUSEA [None]
  - TACHYCARDIA [None]
  - ARTHRALGIA [None]
  - INFECTION [None]
